FAERS Safety Report 21706890 (Version 1)
Quarter: 2022Q4

REPORT INFORMATION
  Report Type: Report from Study
  Country: US (occurrence: US)
  Receive Date: 20221209
  Receipt Date: 20221209
  Transmission Date: 20230112
  Serious: Yes (Disabling)
  Sender: FDA-Public Use
  Company Number: US-AMGEN-USASP2022206895

PATIENT
  Age: 80 Year

DRUGS (12)
  1. PROLIA [Suspect]
     Active Substance: DENOSUMAB
     Indication: Osteoporosis
     Dosage: 60 MILLIGRAM, Q6MO
     Route: 058
     Dates: start: 20220826
  2. CALCIUM [Concomitant]
     Active Substance: CALCIUM
     Indication: Product used for unknown indication
     Dosage: 600 MILLIGRAM, BID
     Route: 065
  3. CANNABIDIOL\HERBALS [Concomitant]
     Active Substance: CANNABIDIOL\HERBALS
     Indication: Product used for unknown indication
     Route: 065
  4. Ala [Concomitant]
     Dosage: 300 MILLIGRAM, QD
     Route: 065
  5. PROBIOTICS NOS [Concomitant]
     Active Substance: PROBIOTICS NOS
     Dosage: UNK UNK, QD
  6. ALCOHOL [Concomitant]
     Active Substance: ALCOHOL
     Dosage: UNK
  7. FOSAMAX [Concomitant]
     Active Substance: ALENDRONATE SODIUM
     Dosage: UNK
  8. KLONOPIN [Concomitant]
     Active Substance: CLONAZEPAM
     Dosage: 5 MILLIGRAM, BID
     Route: 065
  9. VITAMIN D [Concomitant]
     Active Substance: VITAMIN D NOS
     Dosage: UNK UNK, QD
  10. METHOCARBAMOL [Concomitant]
     Active Substance: METHOCARBAMOL
     Dosage: 500 MILLIGRAM, EVERY 6 HOURS
     Route: 048
     Dates: end: 202203
  11. AMBIEN [Concomitant]
     Active Substance: ZOLPIDEM TARTRATE
     Indication: Osteoporosis
     Dosage: 5 MILLIGRAM, AS NECESSARY
     Route: 058
  12. VITAMIN B COMPLEX [Concomitant]
     Active Substance: CYANOCOBALAMIN\DEXPANTHENOL\NIACINAMIDE\PYRIDOXINE HYDROCHLORIDE\RIBOFLAVIN 5^-PHOSPHATE SODIUM\THIA

REACTIONS (24)
  - Hypersensitivity [Unknown]
  - Onychomadesis [Unknown]
  - Nervousness [Unknown]
  - Burning sensation [Unknown]
  - Sensitive skin [Unknown]
  - Gait disturbance [Unknown]
  - Nail infection [Unknown]
  - Blister [Unknown]
  - Skin discolouration [Unknown]
  - Confusional state [Unknown]
  - Joint stiffness [Unknown]
  - Pain in jaw [Unknown]
  - Balance disorder [Unknown]
  - Hypoaesthesia [Unknown]
  - Tremor [Unknown]
  - Dysuria [Unknown]
  - Diarrhoea [Unknown]
  - Pain [Not Recovered/Not Resolved]
  - Paraesthesia [Unknown]
  - Insomnia [Unknown]
  - Arthralgia [Unknown]
  - Back pain [Unknown]
  - Myalgia [Unknown]
  - Erythema [Unknown]

NARRATIVE: CASE EVENT DATE: 20220101
